FAERS Safety Report 6434981-1 (Version None)
Quarter: 2009Q4

REPORT INFORMATION
  Report Type: 
  Country: None (occurrence: None)
  Receive Date: 20091110
  Receipt Date: 20091104
  Transmission Date: 20100525
  Serious: Yes (Death, Hospitalization)
  Sender: FDA-Public Use
  Company Number: US-CELGENEUS-163-50794-09101210

PATIENT
  Sex: Male
  Weight: 95 kg

DRUGS (35)
  1. VIDAZA [Suspect]
     Indication: MYELODYSPLASTIC SYNDROME
     Route: 051
     Dates: start: 20090921, end: 20090924
  2. GLIPIZIDE [Concomitant]
     Route: 048
     Dates: end: 20091029
  3. GLIPIZIDE [Concomitant]
     Route: 065
  4. IMDUR [Concomitant]
     Indication: DRUG USE FOR UNKNOWN INDICATION
     Route: 048
     Dates: end: 20091029
  5. IMDUR [Concomitant]
     Route: 065
  6. LYRICA [Concomitant]
     Indication: DIABETIC NEUROPATHY
     Route: 048
     Dates: end: 20091029
  7. LYRICA [Concomitant]
     Route: 048
  8. METFORMIN HCL [Concomitant]
     Route: 048
     Dates: end: 20091029
  9. TOPROL-XL [Concomitant]
     Indication: HYPERTENSION
     Route: 048
     Dates: end: 20091029
  10. SIMVASTATIN [Concomitant]
     Route: 048
     Dates: end: 20091029
  11. RED BLOOD CELLS [Concomitant]
     Dosage: 2 UNITS
     Route: 051
     Dates: start: 20090925, end: 20090925
  12. RED BLOOD CELLS [Concomitant]
     Dosage: 2 UNITS
     Route: 051
     Dates: start: 20091006, end: 20091006
  13. RED BLOOD CELLS [Concomitant]
     Dosage: 2 UNITS
     Route: 051
     Dates: start: 20091012, end: 20091012
  14. RED BLOOD CELLS [Concomitant]
     Dosage: 2 UNIT
     Route: 051
     Dates: start: 20091013, end: 20091013
  15. PLATELETS [Concomitant]
     Dosage: 6 UNITS
     Route: 051
     Dates: start: 20091006, end: 20091006
  16. PLATELETS [Concomitant]
     Route: 051
     Dates: start: 20091001, end: 20091001
  17. DIGOXIN [Concomitant]
     Indication: DRUG USE FOR UNKNOWN INDICATION
     Route: 065
  18. POTASSIUM CHLORIDE [Concomitant]
     Indication: DRUG USE FOR UNKNOWN INDICATION
     Route: 065
  19. SENOKOT [Concomitant]
     Indication: DRUG USE FOR UNKNOWN INDICATION
     Route: 065
  20. MORPHINE [Concomitant]
     Indication: DRUG USE FOR UNKNOWN INDICATION
     Route: 065
  21. SPIRONOLACTONE [Concomitant]
     Indication: DRUG USE FOR UNKNOWN INDICATION
     Route: 048
  22. PHENYTOIN [Concomitant]
     Indication: DRUG USE FOR UNKNOWN INDICATION
     Route: 065
  23. CARAFATE [Concomitant]
     Indication: DRUG USE FOR UNKNOWN INDICATION
     Route: 065
  24. NEUPOGEN [Concomitant]
     Route: 058
     Dates: start: 20091013, end: 20091014
  25. BENEFIBER [Concomitant]
     Indication: DRUG USE FOR UNKNOWN INDICATION
     Route: 065
  26. FLOMAX [Concomitant]
     Indication: DRUG USE FOR UNKNOWN INDICATION
     Route: 065
  27. HYDROCORTISONE [Concomitant]
     Route: 054
  28. HYDROCORTISONE [Concomitant]
     Route: 054
  29. METOPROLOL TARTRATE [Concomitant]
     Indication: DRUG USE FOR UNKNOWN INDICATION
     Route: 048
  30. NITROGLYCERIN [Concomitant]
     Indication: DRUG USE FOR UNKNOWN INDICATION
     Route: 065
  31. PERCOSET [Concomitant]
     Indication: PAIN
     Dosage: 5/325
     Route: 065
  32. TRICOR [Concomitant]
     Indication: DRUG USE FOR UNKNOWN INDICATION
     Route: 048
  33. VITAMIN B COMPLEX CAP [Concomitant]
     Indication: DRUG USE FOR UNKNOWN INDICATION
     Route: 065
  34. DILANTIN [Concomitant]
     Indication: DRUG USE FOR UNKNOWN INDICATION
     Route: 065
  35. STATIN AGENT [Concomitant]
     Indication: DRUG USE FOR UNKNOWN INDICATION
     Route: 065

REACTIONS (2)
  - PANCYTOPENIA [None]
  - RENAL FAILURE [None]
